FAERS Safety Report 4634782-0 (Version None)
Quarter: 2005Q2

REPORT INFORMATION
  Report Type: 
  Country: None (occurrence: None)
  Receive Date: 20050412
  Receipt Date: 20050412
  Transmission Date: 20051028
  Serious: No
  Sender: FDA-Public Use
  Company Number: None

PATIENT
  Sex: Male
  Weight: 0.98 kg

DRUGS (4)
  1. LIDOCAINE/PRILOCAINE 2.5/2.5% [Suspect]
     Indication: LOCAL ANAESTHESIA
     Dosage: X1  TOPICAL
     Route: 061
     Dates: start: 20050312, end: 20050312
  2. LIDOCAINE/PRILOCAINE 2.5/2.5% [Suspect]
     Indication: LUMBAR PUNCTURE
     Dosage: X1  TOPICAL
     Route: 061
     Dates: start: 20050312, end: 20050312
  3. LUMBAR PUNCTURE [Concomitant]
  4. BASIC NEONATAL INTENSIVE SUPPORTIVE CARE [Concomitant]

REACTIONS (4)
  - DERMATITIS CONTACT [None]
  - POST PROCEDURAL HAEMORRHAGE [None]
  - SKIN DISCOLOURATION [None]
  - SKIN LESION [None]
